FAERS Safety Report 7679104-6 (Version None)
Quarter: 2011Q3

REPORT INFORMATION
  Report Type: 
  Country: None (occurrence: None)
  Receive Date: 20110812
  Receipt Date: 20110808
  Transmission Date: 20111222
  Serious: Yes (Hospitalization, Other)
  Sender: FDA-Public Use
  Company Number: AR-AMGEN-ARGSP2011028615

PATIENT
  Age: 57 Year
  Sex: Female
  Weight: 58 kg

DRUGS (2)
  1. ENBREL [Suspect]
     Indication: RHEUMATOID ARTHRITIS
     Dosage: 50 MG, WEEKLY
     Route: 058
     Dates: start: 20100430, end: 20110101
  2. METHOTREXATE [Concomitant]
     Dosage: UNK

REACTIONS (2)
  - INTESTINAL ANASTOMOSIS [None]
  - INFECTIOUS PERITONITIS [None]
